FAERS Safety Report 17435616 (Version 3)
Quarter: 2021Q1

REPORT INFORMATION
  Report Type: Spontaneous
  Country: US (occurrence: US)
  Receive Date: 20200219
  Receipt Date: 20210308
  Transmission Date: 20210419
  Serious: Yes (Disabling, Other)
  Sender: FDA-Public Use
  Company Number: US-PFIZER INC-2020073680

PATIENT
  Age: 77 Year
  Sex: Male

DRUGS (2)
  1. DILANTIN [Suspect]
     Active Substance: PHENYTOIN
     Dosage: 100 MG, 2X/DAY
     Route: 048
  2. DILANTIN [Suspect]
     Active Substance: PHENYTOIN
     Indication: SEIZURE
     Dosage: 100 MG, 3X/DAY
     Route: 048

REACTIONS (6)
  - Mood swings [Unknown]
  - Cerebellar atrophy [Not Recovered/Not Resolved]
  - Tremor [Unknown]
  - Memory impairment [Unknown]
  - Balance disorder [Unknown]
  - Dizziness [Unknown]

NARRATIVE: CASE EVENT DATE: 20200207
